FAERS Safety Report 6439763-2 (Version None)
Quarter: 2009Q4

REPORT INFORMATION
  Report Type: 
  Country: None (occurrence: None)
  Receive Date: 20091112
  Receipt Date: 20091112
  Transmission Date: 20100525
  Serious: Yes (Hospitalization)
  Sender: FDA-Public Use
  Company Number: None

PATIENT
  Age: 63 Year
  Sex: Male
  Weight: 75.7 kg

DRUGS (2)
  1. CLINDAMYCIN [Suspect]
     Indication: ARTHROPOD BITE
     Dosage: 450 MG TID PO
     Route: 048
     Dates: start: 20091005, end: 20091013
  2. CLINDAMYCIN [Suspect]
     Indication: CELLULITIS
     Dosage: 450 MG TID PO
     Route: 048
     Dates: start: 20091005, end: 20091013

REACTIONS (1)
  - HEPATIC ENZYME INCREASED [None]
